FAERS Safety Report 21748265 (Version 1)
Quarter: 2022Q4

REPORT INFORMATION
  Report Type: Spontaneous
  Country: US (occurrence: None)
  Receive Date: 20221216
  Receipt Date: 20221216
  Transmission Date: 20230113
  Serious: Yes (Hospitalization)
  Sender: FDA-Public Use
  Company Number: None

PATIENT
  Age: 61 Year
  Sex: Male
  Weight: 82.1 kg

DRUGS (16)
  1. TEMOZOLOMIDE [Suspect]
     Active Substance: TEMOZOLOMIDE
     Indication: Brain neoplasm malignant
     Dosage: FREQUENCY : DAILY;?
     Route: 048
     Dates: start: 202210, end: 20221203
  2. ACYCLOVIR [Concomitant]
     Active Substance: ACYCLOVIR
  3. AMLODIPINE [Concomitant]
     Active Substance: AMLODIPINE BESYLATE
  4. ARIPIPRAZOLE [Concomitant]
     Active Substance: ARIPIPRAZOLE
  5. ATORVASTATIN [Concomitant]
     Active Substance: ATORVASTATIN
  6. VITAMIN C [Concomitant]
     Active Substance: ASCORBIC ACID
  7. FOLIC ACID [Concomitant]
     Active Substance: FOLIC ACID
  8. HYDRALAZINE [Concomitant]
     Active Substance: HYDRALAZINE HYDROCHLORIDE
  9. KINOKO [Concomitant]
  10. LEVETIRACETAM [Concomitant]
     Active Substance: LEVETIRACETAM
  11. SERTRALINE [Concomitant]
     Active Substance: SERTRALINE HYDROCHLORIDE
  12. MAGOX [Concomitant]
  13. SUPER B50 [Concomitant]
  14. THERAFLU NOS [Concomitant]
     Active Substance: ACETAMINOPHEN AND OR DEXTROMETHORPHAN AND OR DIPHENHYDRAMINE AND OR GUAIFENESIN AND OR PHENYLEPHRINE
  15. VITAFUSION MENS DAILY GUMMIES [Concomitant]
  16. ZOFRAN [Concomitant]
     Active Substance: ONDANSETRON HYDROCHLORIDE

REACTIONS (2)
  - Nausea [None]
  - Vomiting [None]
